FAERS Safety Report 7506136-0 (Version None)
Quarter: 2011Q2

REPORT INFORMATION
  Report Type: 
  Country: None (occurrence: None)
  Receive Date: 20110526
  Receipt Date: 20110520
  Transmission Date: 20111010
  Serious: Yes (Other)
  Sender: FDA-Public Use
  Company Number: US-ABBOTT-11P-163-0727639-00

PATIENT
  Age: 64 Year
  Sex: Female

DRUGS (15)
  1. PROVENTIL [Concomitant]
     Indication: ASTHMA
     Dosage: WHEN HAS ATTACK
  2. DILTIAZEM [Concomitant]
     Indication: HEART RATE INCREASED
  3. FOLIC ACID [Concomitant]
     Indication: VITAMIN SUPPLEMENTATION
  4. TRIAMTERENE AND HYDROCHLOROTHIAZIDE [Concomitant]
     Indication: CARDIAC DISORDER
     Dosage: 37.5-25 ONE DAILY WATER PILL
  5. PREDNISONE [Concomitant]
     Indication: PRODUCT USED FOR UNKNOWN INDICATION
  6. LYRICA [Concomitant]
     Indication: PRODUCT USED FOR UNKNOWN INDICATION
  7. HUMIRA [Suspect]
     Indication: RHEUMATOID ARTHRITIS
     Dates: start: 20100701
  8. ALBUTEROL SULFATE AUTOHALER [Concomitant]
     Indication: ASTHMA
     Dosage: PER MACHINE AS NEEDED
  9. MATURE COMPLETE MULTIVITAMIN ONE DAILY [Concomitant]
     Indication: PRODUCT USED FOR UNKNOWN INDICATION
  10. METHOTREXATE [Concomitant]
     Indication: RHEUMATOID ARTHRITIS
     Dosage: 2.5 TABLETS 8 WEEKLY
  11. ALENDRONATE SODIUM [Concomitant]
     Indication: BONE DISORDER
  12. LORATADINE [Concomitant]
     Indication: HYPERSENSITIVITY
  13. WARFARIN SODIUM [Concomitant]
     Indication: PRODUCT USED FOR UNKNOWN INDICATION
  14. PRAVASTATIN [Concomitant]
     Indication: BLOOD CHOLESTEROL
  15. SINGULAIR [Concomitant]
     Indication: ASTHMA

REACTIONS (11)
  - TRANSIENT ISCHAEMIC ATTACK [None]
  - OEDEMA PERIPHERAL [None]
  - PULMONARY EMBOLISM [None]
  - GAIT DISTURBANCE [None]
  - VISUAL IMPAIRMENT [None]
  - VISION BLURRED [None]
  - ARTERIAL SPASM [None]
  - EYE PAIN [None]
  - TINNITUS [None]
  - CEREBROVASCULAR ACCIDENT [None]
  - EMBOLISM VENOUS [None]
